FAERS Safety Report 5851218-2 (Version None)
Quarter: 2008Q3

REPORT INFORMATION
  Report Type: 
  Country: None (occurrence: None)
  Receive Date: 20080820
  Receipt Date: 20080815
  Transmission Date: 20090109
  Serious: Yes (Other)
  Sender: FDA-Public Use
  Company Number: US-JNJFOC-20080803250

PATIENT
  Sex: Female

DRUGS (7)
  1. DOXIL [Suspect]
     Dosage: 4TH DOSE
     Route: 042
  2. DOXIL [Suspect]
     Indication: UTERINE CANCER
     Dosage: 1ST 3 DOSES
     Route: 042
  3. METOPROLOL TARTRATE [Concomitant]
     Indication: HYPERTENSION
     Route: 065
  4. LASIX [Concomitant]
     Indication: DIURETIC THERAPY
     Route: 065
  5. POTASSIUM CHLORIDE [Concomitant]
     Route: 065
  6. STOOL SOFTNER [Concomitant]
     Route: 065
  7. MULTI-VITAMIN [Concomitant]
     Route: 065

REACTIONS (3)
  - BURNING SENSATION [None]
  - OEDEMA PERIPHERAL [None]
  - RASH GENERALISED [None]
